FAERS Safety Report 8361813-7 (Version None)
Quarter: 2012Q2

REPORT INFORMATION
  Report Type: 
  Country: None (occurrence: None)
  Receive Date: 20120515
  Receipt Date: 20120322
  Transmission Date: 20120825
  Serious: Yes (Death)
  Sender: FDA-Public Use
  Company Number: JP-GLAXOSMITHKLINE-B0791706A

PATIENT
  Sex: Female

DRUGS (3)
  1. LAMICTAL [Suspect]
     Indication: BIPOLAR II DISORDER
     Dosage: 25MG PER DAY
     Route: 048
     Dates: start: 20110810, end: 20110824
  2. FLUVOXAMINE MALEATE [Concomitant]
     Indication: DEPRESSION
     Dosage: 50MG PER DAY
     Route: 048
  3. LEXOTAN [Concomitant]
     Indication: DEPRESSION
     Dosage: 15MG PER DAY
     Route: 048

REACTIONS (3)
  - RASH [None]
  - COMPLETED SUICIDE [None]
  - SKIN DISORDER [None]
